FAERS Safety Report 21803082 (Version 1)
Quarter: 2022Q4

REPORT INFORMATION
  Report Type: Report from Study
  Country: US (occurrence: US)
  Receive Date: 20221231
  Receipt Date: 20221231
  Transmission Date: 20230113
  Serious: No
  Sender: FDA-Public Use
  Company Number: US-ACORDA-ACO_174126_2022

PATIENT

DRUGS (3)
  1. INBRIJA [Interacting]
     Active Substance: LEVODOPA
     Indication: Parkinson^s disease
     Dosage: 2 DOSAGE FORM (84 MILLIGRAMS), PRN, (NOT TO EXCEED 5 DOSES A DAY)
  2. INBRIJA [Interacting]
     Active Substance: LEVODOPA
     Indication: On and off phenomenon
  3. CARBIDOPA\LEVODOPA [Concomitant]
     Active Substance: CARBIDOPA\LEVODOPA
     Indication: Product used for unknown indication
     Dosage: UNK
     Route: 065

REACTIONS (5)
  - Speech disorder [Not Recovered/Not Resolved]
  - Product packaging difficult to open [Unknown]
  - Incorrect dose administered [Unknown]
  - Drug ineffective [Unknown]
  - Cough [Not Recovered/Not Resolved]
